FAERS Safety Report 5023612-3 (Version None)
Quarter: 2006Q2

REPORT INFORMATION
  Report Type: 
  Country: None (occurrence: None)
  Receive Date: 20060606
  Receipt Date: 20060521
  Transmission Date: 20061013
  Serious: Yes (Hospitalization)
  Sender: FDA-Public Use
  Company Number: DE-INTERMUNE-2004IM000991

PATIENT
  Age: 65 Year
  Sex: Male
  Weight: 80 kg

DRUGS (4)
  1. INTERFERON ALFACON-1 (INTERFERON ALFACON-1)  (9 UG) [Suspect]
     Indication: HEPATITIS C
     Dosage: 9 UG; QD; SC
     Route: 058
     Dates: start: 20040324, end: 20041130
  2. RIBAVIRIN [Suspect]
     Indication: HEPATITIS C
     Dosage: 800 MG; QD; PO
     Route: 048
     Dates: start: 20040622, end: 20041130
  3. BISOPROLOL [Concomitant]
  4. SPIRONOLACTONE [Concomitant]

REACTIONS (7)
  - CONDITION AGGRAVATED [None]
  - DISTURBANCE IN ATTENTION [None]
  - HEPATIC CIRRHOSIS [None]
  - HEPATIC FAILURE [None]
  - LETHARGY [None]
  - ORAL INTAKE REDUCED [None]
  - URINARY TRACT INFECTION [None]
